FAERS Safety Report 15482055 (Version 1)
Quarter: 2018Q4

REPORT INFORMATION
  Report Type: Spontaneous
  Country: AR (occurrence: AR)
  Receive Date: 20181010
  Receipt Date: 20181010
  Transmission Date: 20190205
  Serious: Yes (Other)
  Sender: FDA-Public Use
  Company Number: AR-JNJFOC-20180712375

PATIENT
  Sex: Female

DRUGS (2)
  1. IMBRUVICA [Suspect]
     Active Substance: IBRUTINIB
     Indication: CHRONIC LYMPHOCYTIC LEUKAEMIA
     Route: 048
  2. IMBRUVICA [Suspect]
     Active Substance: IBRUTINIB
     Indication: CHRONIC LYMPHOCYTIC LEUKAEMIA
     Route: 048

REACTIONS (7)
  - Dysaesthesia [Unknown]
  - Hyperleukocytosis [Recovering/Resolving]
  - Splenomegaly [Unknown]
  - Lymphadenopathy [Recovering/Resolving]
  - Lymphocytosis [Not Recovered/Not Resolved]
  - Anaemia [Unknown]
  - Paraesthesia [Unknown]
